FAERS Safety Report 5285724-9 (Version None)
Quarter: 2007Q1

REPORT INFORMATION
  Report Type: 
  Country: None (occurrence: None)
  Receive Date: 20070126
  Receipt Date: 20061101
  Transmission Date: 20070707
  Serious: No
  Sender: FDA-Public Use
  Company Number: 2006CT000728

PATIENT
  Age: 74 Year
  Sex: Male
  Weight: 79.3795 kg

DRUGS (17)
  1. VENTAVIS [Suspect]
     Indication: PULMONARY HYPERTENSION
     Dosage: 5 UG;4XD;INH
     Route: 055
     Dates: start: 20060717, end: 20061101
  2. ASPIRIN [Concomitant]
  3. ALBUTEROL [Concomitant]
  4. TOPROL-XL [Concomitant]
  5. METFORMIN HCL [Concomitant]
  6. AVANDIA [Concomitant]
  7. DYNACIRC [Concomitant]
  8. ATORVASTATIN CALCIUM [Concomitant]
  9. WARFARIN SODIUM [Concomitant]
  10. TAMSULOSIN HCL [Concomitant]
  11. QUINAPRIL [Concomitant]
  12. PREDNISOLONE ACETATE [Concomitant]
  13. ALLEGRA [Concomitant]
  14. ADVAIR DISKUS 100/50 [Concomitant]
  15. TIOTROPIUM BROMIDE [Concomitant]
  16. TRACLEER [Concomitant]
  17. SILDENAFIL CITRATE [Concomitant]

REACTIONS (8)
  - BLOOD PRESSURE DECREASED [None]
  - CHEST PAIN [None]
  - DIARRHOEA [None]
  - DIZZINESS [None]
  - DYSPHONIA [None]
  - DYSPNOEA [None]
  - HEART RATE INCREASED [None]
  - PAIN IN EXTREMITY [None]
